FAERS Safety Report 11637124 (Version 1)
Quarter: 2015Q4

REPORT INFORMATION
  Report Type: Spontaneous
  Country: US (occurrence: None)
  Receive Date: 20151015
  Receipt Date: 20151015
  Transmission Date: 20160304
  Serious: No
  Sender: FDA-Public Use
  Company Number: None

PATIENT
  Age: 60 Year
  Sex: Male
  Weight: 113.4 kg

DRUGS (10)
  1. MAGNESIUM OXIDE. [Concomitant]
     Active Substance: MAGNESIUM OXIDE
  2. POTASSIUM CHLORIDE. [Concomitant]
     Active Substance: POTASSIUM CHLORIDE
  3. SPIRONOLACTONE. [Concomitant]
     Active Substance: SPIRONOLACTONE
  4. WARFARIN [Concomitant]
     Active Substance: WARFARIN
  5. ATORVASTIN [Concomitant]
     Active Substance: ATORVASTATIN
  6. BRILINTA [Suspect]
     Active Substance: TICAGRELOR
     Indication: MYOCARDIAL INFARCTION
     Dates: start: 20150501, end: 20151002
  7. CARVEDILOL. [Concomitant]
     Active Substance: CARVEDILOL
  8. ALLOPURINOL. [Concomitant]
     Active Substance: ALLOPURINOL
  9. FUROSEMIDE. [Concomitant]
     Active Substance: FUROSEMIDE
  10. EFFIENT [Concomitant]
     Active Substance: PRASUGREL HYDROCHLORIDE

REACTIONS (1)
  - Dyspnoea [None]

NARRATIVE: CASE EVENT DATE: 20150922
